FAERS Safety Report 5719109-5 (Version None)
Quarter: 2008Q2

REPORT INFORMATION
  Report Type: 
  Country: None (occurrence: None)
  Receive Date: 20080427
  Receipt Date: 20080416
  Transmission Date: 20081010
  Serious: Yes (Life-Threatening, Hospitalization)
  Sender: FDA-Public Use
  Company Number: JP-TYCO HEALTHCARE/MALLINCKRODT-T200800683

PATIENT

DRUGS (2)
  1. OPTIRAY 300 [Suspect]
     Indication: COMPUTERISED TOMOGRAM HEAD
     Dosage: 50 ML, SINGLE
     Route: 042
     Dates: start: 20080411, end: 20080411
  2. ASPIRIN [Concomitant]
     Dosage: UNK, UNK
     Route: 048

REACTIONS (4)
  - BLOOD PRESSURE DECREASED [None]
  - NAUSEA [None]
  - RASH GENERALISED [None]
  - VOMITING [None]
